FAERS Safety Report 6177649-1 (Version None)
Quarter: 2009Q2

REPORT INFORMATION
  Report Type: 
  Country: None (occurrence: None)
  Receive Date: 20090504
  Receipt Date: 20090422
  Transmission Date: 20091009
  Serious: Yes (Other)
  Sender: FDA-Public Use
  Company Number: US-PFIZER INC-2009180845

PATIENT
  Sex: Female
  Weight: 62.585 kg

DRUGS (6)
  1. FLUCONAZOLE [Suspect]
     Dosage: 200 MG, UNK
     Dates: start: 20090216, end: 20090201
  2. LEXAPRO [Concomitant]
     Dosage: 10 MG, UNK
  3. CIPROFLOXACIN [Concomitant]
     Dosage: 500 MG, UNK
  4. GLIMEPIRIDE [Concomitant]
     Dosage: 1 MG, UNK
  5. IPRATROPIUM BROMIDE [Concomitant]
     Dosage: 0.02 %, UNK
  6. XOPENEX [Concomitant]
     Dosage: UNK

REACTIONS (10)
  - ANXIETY [None]
  - CHILLS [None]
  - CONFUSIONAL STATE [None]
  - DEMENTIA [None]
  - MENTAL DISORDER [None]
  - NEGATIVE THOUGHTS [None]
  - PAIN [None]
  - PANIC ATTACK [None]
  - SUICIDAL IDEATION [None]
  - VISUAL IMPAIRMENT [None]
